FAERS Safety Report 7972280-7 (Version None)
Quarter: 2011Q4

REPORT INFORMATION
  Report Type: 
  Country: None (occurrence: None)
  Receive Date: 20111213
  Receipt Date: 20111130
  Transmission Date: 20120403
  Serious: Yes (Hospitalization)
  Sender: FDA-Public Use
  Company Number: US-BIOGENIDEC-2011BI045493

PATIENT
  Age: 30 Year
  Sex: Female
  Weight: 70 kg

DRUGS (4)
  1. TYSABRI [Suspect]
     Indication: CROHN'S DISEASE
     Route: 042
     Dates: start: 20101201, end: 20110419
  2. SYNTHROID [Concomitant]
     Indication: HYPOTHYROIDISM
     Route: 048
  3. CIPROFLOXACIN [Concomitant]
     Indication: CROHN'S DISEASE
     Route: 048
     Dates: start: 20110511, end: 20110625
  4. FLAGYL [Concomitant]
     Indication: CROHN'S DISEASE
     Route: 048
     Dates: start: 20110511, end: 20110625

REACTIONS (2)
  - ANORECTAL STENOSIS [None]
  - COLONIC STENOSIS [None]
